FAERS Safety Report 12147578 (Version 9)
Quarter: 2017Q1

REPORT INFORMATION
  Report Type: Spontaneous
  Country: BR (occurrence: BR)
  Receive Date: 20160304
  Receipt Date: 20170323
  Transmission Date: 20170428
  Serious: Yes (Other)
  Sender: FDA-Public Use
  Company Number: BR-JNJFOC-20160227879

PATIENT
  Age: 12 Year
  Sex: Male
  Weight: 58 kg

DRUGS (11)
  1. REMICADE [Suspect]
     Active Substance: INFLIXIMAB
     Indication: CROHN^S DISEASE
     Route: 042
  2. REMICADE [Suspect]
     Active Substance: INFLIXIMAB
     Indication: CROHN^S DISEASE
     Dosage: 6 OR 7 VIALS
     Route: 042
     Dates: start: 20170116
  3. AZATHIOPRINE. [Concomitant]
     Active Substance: AZATHIOPRINE
     Route: 065
  4. REMICADE [Suspect]
     Active Substance: INFLIXIMAB
     Indication: CROHN^S DISEASE
     Route: 042
     Dates: start: 20160119
  5. REMICADE [Suspect]
     Active Substance: INFLIXIMAB
     Indication: CROHN^S DISEASE
     Route: 042
  6. REMICADE [Suspect]
     Active Substance: INFLIXIMAB
     Indication: CROHN^S DISEASE
     Route: 042
  7. REMICADE [Suspect]
     Active Substance: INFLIXIMAB
     Indication: CROHN^S DISEASE
     Route: 042
  8. CIPROFLOXACIN. [Concomitant]
     Active Substance: CIPROFLOXACIN
     Indication: ANAL FISTULA
     Dosage: 6 MONTHS
     Route: 048
  9. REMICADE [Suspect]
     Active Substance: INFLIXIMAB
     Indication: CROHN^S DISEASE
     Route: 042
  10. REMICADE [Suspect]
     Active Substance: INFLIXIMAB
     Indication: CROHN^S DISEASE
     Route: 042
     Dates: start: 20150801
  11. REMICADE [Suspect]
     Active Substance: INFLIXIMAB
     Indication: CROHN^S DISEASE
     Dosage: TOTAL DOSE 400 MG
     Route: 042
     Dates: start: 20150723

REACTIONS (19)
  - Testicular swelling [Recovering/Resolving]
  - Neoplasm skin [Unknown]
  - Purulence [Recovering/Resolving]
  - Drug ineffective [Not Recovered/Not Resolved]
  - Drug prescribing error [Unknown]
  - Erythema [Recovering/Resolving]
  - Product use issue [Unknown]
  - Weight increased [Not Recovered/Not Resolved]
  - Drug effect decreased [Unknown]
  - Pyrexia [Unknown]
  - Fistula [Not Recovered/Not Resolved]
  - Subcutaneous abscess [Recovering/Resolving]
  - Procedural pain [Unknown]
  - Crohn^s disease [Not Recovered/Not Resolved]
  - Groin abscess [Recovering/Resolving]
  - Herpes simplex [Recovering/Resolving]
  - Feeling abnormal [Unknown]
  - Off label use [Unknown]
  - Drug level decreased [Unknown]

NARRATIVE: CASE EVENT DATE: 201512
